FAERS Safety Report 9171511 (Version 1)
Quarter: 2013Q1

REPORT INFORMATION
  Report Type: Spontaneous
  Country: US (occurrence: US)
  Receive Date: 20130319
  Receipt Date: 20130319
  Transmission Date: 20140127
  Serious: Yes (Hospitalization)
  Sender: FDA-Public Use
  Company Number: US-GLAXOSMITHKLINE-A0718170A

PATIENT
  Age: 65 Year
  Sex: Male
  Weight: 143.2 kg

DRUGS (9)
  1. AVANDIA [Suspect]
     Indication: TYPE 2 DIABETES MELLITUS
     Dosage: 4MG PER DAY
     Route: 048
     Dates: end: 20060802
  2. AVANDAMET [Suspect]
     Indication: TYPE 2 DIABETES MELLITUS
     Route: 048
     Dates: start: 20031209
  3. METFORMIN [Concomitant]
  4. GLUCOTROL [Concomitant]
  5. ATENOLOL [Concomitant]
  6. SIMVASTATIN [Concomitant]
  7. ENALAPRIL [Concomitant]
  8. ASPIRIN [Concomitant]
  9. NSAID [Concomitant]
     Dates: end: 200607

REACTIONS (3)
  - Angina pectoris [Unknown]
  - Cardiac failure congestive [Unknown]
  - Arterial occlusive disease [Unknown]
